FAERS Safety Report 12405950 (Version 1)
Quarter: 2016Q2

REPORT INFORMATION
  Report Type: Spontaneous
  Country: US (occurrence: None)
  Receive Date: 20160525
  Receipt Date: 20160525
  Transmission Date: 20160815
  Serious: No
  Sender: FDA-Public Use
  Company Number: None

PATIENT
  Age: 63 Year

DRUGS (3)
  1. JADENU [Suspect]
     Active Substance: DEFERASIROX
     Indication: SYSTEMIC LUPUS ERYTHEMATOSUS
     Route: 048
     Dates: start: 20150915
  2. JADENU [Suspect]
     Active Substance: DEFERASIROX
     Indication: IRON METABOLISM DISORDER
     Route: 048
     Dates: start: 20150915
  3. JADENU [Suspect]
     Active Substance: DEFERASIROX
     Indication: RHEUMATOID ARTHRITIS
     Route: 048
     Dates: start: 20150915

REACTIONS (2)
  - Liver disorder [None]
  - Liver function test increased [None]

NARRATIVE: CASE EVENT DATE: 2016
